FAERS Safety Report 6191145-7 (Version None)
Quarter: 2009Q2

REPORT INFORMATION
  Report Type: 
  Country: None (occurrence: None)
  Receive Date: 20090515
  Receipt Date: 20090505
  Transmission Date: 20091009
  Serious: Yes (Hospitalization)
  Sender: FDA-Public Use
  Company Number: FR-TEVA-194035ISR

PATIENT
  Sex: Female

DRUGS (1)
  1. PIROXICAM [Suspect]
     Indication: TENDONITIS

REACTIONS (1)
  - CEREBRAL HAEMORRHAGE [None]
